FAERS Safety Report 12303021 (Version 1)
Quarter: 2016Q2

REPORT INFORMATION
  Report Type: Report from Study
  Country: US (occurrence: US)
  Receive Date: 20160426
  Receipt Date: 20160426
  Transmission Date: 20160815
  Serious: Yes (Other)
  Sender: FDA-Public Use
  Company Number: PHEH2014US004128

PATIENT
  Age: 27 Year
  Sex: Female
  Weight: 73.16 kg

DRUGS (3)
  1. GILENYA [Suspect]
     Active Substance: FINGOLIMOD HYDROCHLORIDE
     Indication: MULTIPLE SCLEROSIS
     Dosage: 0.5 MG, QD
     Route: 048
     Dates: start: 20140129
  2. SOLU-MEDROL [Suspect]
     Active Substance: METHYLPREDNISOLONE SODIUM SUCCINATE
     Indication: PRODUCT USED FOR UNKNOWN INDICATION
  3. LYRICA [Concomitant]
     Active Substance: PREGABALIN
     Indication: PRODUCT USED FOR UNKNOWN INDICATION
     Dosage: UNK
     Route: 065

REACTIONS (29)
  - Eating disorder [Unknown]
  - Visual impairment [Unknown]
  - Liver disorder [Unknown]
  - Multiple sclerosis [Not Recovered/Not Resolved]
  - Eye disorder [Not Recovered/Not Resolved]
  - Muscle tightness [Unknown]
  - Central nervous system lesion [Unknown]
  - Weight increased [Unknown]
  - Stress [Not Recovered/Not Resolved]
  - Feeling abnormal [Unknown]
  - Vision blurred [Not Recovered/Not Resolved]
  - Body dysmorphic disorder [Unknown]
  - Palpitations [Unknown]
  - Paraesthesia [Recovering/Resolving]
  - Mental disorder [Unknown]
  - Balance disorder [Not Recovered/Not Resolved]
  - Muscular weakness [Unknown]
  - Fall [Recovering/Resolving]
  - Anxiety disorder [Not Recovered/Not Resolved]
  - Anger [Not Recovered/Not Resolved]
  - Tinnitus [Unknown]
  - Heart rate decreased [Recovering/Resolving]
  - Wound infection [Unknown]
  - Pancreatitis [Unknown]
  - Nephrolithiasis [Unknown]
  - Headache [Unknown]
  - Renal disorder [Unknown]
  - Depressed mood [Unknown]
  - Gait disturbance [Unknown]

NARRATIVE: CASE EVENT DATE: 20140226
